FAERS Safety Report 19275938 (Version 2)
Quarter: 2021Q2

REPORT INFORMATION
  Report Type: Spontaneous
  Country: JP (occurrence: JP)
  Receive Date: 20210519
  Receipt Date: 20210608
  Transmission Date: 20210717
  Serious: Yes (Hospitalization, Other)
  Sender: FDA-Public Use
  Company Number: JP-BRISTOL-MYERS SQUIBB COMPANY-BMS-2018-025206

PATIENT
  Age: 54 Year
  Sex: Female
  Weight: 58 kg

DRUGS (4)
  1. RANMARK [Concomitant]
     Active Substance: DENOSUMAB
     Indication: METASTASES TO BONE
     Dosage: 120 MILLIGRAM
     Route: 058
     Dates: start: 20130408, end: 20180522
  2. VOTRIENT [Suspect]
     Active Substance: PAZOPANIB HYDROCHLORIDE
     Indication: METASTATIC RENAL CELL CARCINOMA
     Dosage: 800 MILLIGRAM, QD
     Route: 048
     Dates: start: 20180307, end: 20180315
  3. CEFTRIAXONE SODIUM HYDRATE [Suspect]
     Active Substance: CEFTRIAXONE SODIUM
     Indication: URINARY TRACT INFECTION
     Dosage: 2 GRAM
     Route: 041
     Dates: start: 20180317, end: 20180317
  4. OPDIVO [Suspect]
     Active Substance: NIVOLUMAB
     Indication: METASTATIC RENAL CELL CARCINOMA
     Dosage: 175 MILLIGRAM, QD
     Route: 041
     Dates: start: 20171107, end: 20180220

REACTIONS (19)
  - Pain in extremity [Recovered/Resolved]
  - Malignant neoplasm progression [Unknown]
  - Erythema [Unknown]
  - Lip erosion [Unknown]
  - Eye discharge [Unknown]
  - Hypothyroidism [Recovering/Resolving]
  - Headache [Recovered/Resolved]
  - Malaise [Recovered/Resolved]
  - Liver disorder [Recovered/Resolved]
  - Pyelonephritis [Recovered/Resolved]
  - Abdominal discomfort [Recovered/Resolved]
  - Genital erosion [Unknown]
  - Stevens-Johnson syndrome [Recovered/Resolved]
  - Swelling [Unknown]
  - Eye disorder [Unknown]
  - Pyrexia [Recovered/Resolved]
  - Oropharyngeal pain [Unknown]
  - Oral mucosa erosion [Unknown]
  - Conjunctival hyperaemia [Unknown]

NARRATIVE: CASE EVENT DATE: 20180206
